FAERS Safety Report 11181055 (Version 1)
Quarter: 2015Q2

REPORT INFORMATION
  Report Type: Spontaneous
  Country: US (occurrence: US)
  Receive Date: 20150611
  Receipt Date: 20150611
  Transmission Date: 20150821
  Serious: No
  Sender: FDA-Public Use
  Company Number: US-PFIZER INC-2015192504

PATIENT
  Sex: Female

DRUGS (3)
  1. DILANTIN [Suspect]
     Active Substance: PHENYTOIN
     Dosage: 0.25 DF, UNK
  2. DILANTIN [Suspect]
     Active Substance: PHENYTOIN
     Indication: TREMOR
     Dosage: 30 MG (4 CAPSULES PER DAY-ONE EVERY 2 HOURS)
     Dates: start: 2008
  3. DILANTIN [Suspect]
     Active Substance: PHENYTOIN
     Dosage: 4 DF ONE DAY THEN 3 DF ON THE NEXT DAY AND THEN NONE

REACTIONS (6)
  - Headache [Unknown]
  - Therapeutic response unexpected [Unknown]
  - Pre-existing condition improved [Unknown]
  - Poor quality sleep [Unknown]
  - Feeling abnormal [Unknown]
  - Crying [Unknown]
